FAERS Safety Report 25050194 (Version 1)
Quarter: 2025Q1

REPORT INFORMATION
  Report Type: Report from Study
  Country: BR (occurrence: BR)
  Receive Date: 20250307
  Receipt Date: 20250307
  Transmission Date: 20250409
  Serious: Yes (Other)
  Sender: TAKEDA
  Company Number: BR-TAKEDA-2024TUS125821

PATIENT
  Age: 50 Year
  Sex: Female

DRUGS (1)
  1. VELAGLUCERASE ALFA [Suspect]
     Active Substance: VELAGLUCERASE ALFA
     Indication: Gaucher^s disease
     Dosage: UNK UNK, 2/MONTH

REACTIONS (11)
  - Fear [Unknown]
  - Inappropriate schedule of product administration [Unknown]
  - Treatment noncompliance [Unknown]
  - Migraine [Unknown]
  - Patient dissatisfaction with treatment [Unknown]
  - Anger [Unknown]
  - Product dose omission issue [Unknown]
  - Product preparation issue [Unknown]
  - Loss of personal independence in daily activities [Unknown]
  - Product availability issue [Unknown]
  - Product dispensing error [Unknown]

NARRATIVE: CASE EVENT DATE: 20241211
